FAERS Safety Report 7808573-3 (Version None)
Quarter: 2011Q4

REPORT INFORMATION
  Report Type: 
  Country: None (occurrence: None)
  Receive Date: 20111012
  Receipt Date: 20111007
  Transmission Date: 20120403
  Serious: Yes (Other)
  Sender: FDA-Public Use
  Company Number: US-PFIZER INC-2011240186

PATIENT
  Sex: Female

DRUGS (4)
  1. PRISTIQ [Suspect]
     Dosage: 100 MG, UNK
     Dates: end: 20110101
  2. VIIBRYD [Suspect]
     Dosage: 10 MG, UNK
     Dates: start: 20110101, end: 20110101
  3. VIIBRYD [Suspect]
     Dosage: 20 MG, UNK
     Dates: start: 20110101, end: 20110101
  4. PRISTIQ [Suspect]
     Dosage: 50 MG, UNK
     Dates: start: 20110101, end: 20110101

REACTIONS (3)
  - CONVULSION [None]
  - NEUROLEPTIC MALIGNANT SYNDROME [None]
  - SEROTONIN SYNDROME [None]
